FAERS Safety Report 14246399 (Version 5)
Quarter: 2018Q1

REPORT INFORMATION
  Report Type: Report from Study
  Country: US (occurrence: US)
  Receive Date: 20171204
  Receipt Date: 20180308
  Transmission Date: 20180508
  Serious: Yes (Other)
  Sender: FDA-Public Use
  Company Number: US-TESARO, INC-US-2017TSO04180

PATIENT

DRUGS (12)
  1. ZEJULA [Suspect]
     Active Substance: NIRAPARIB
     Dosage: 200 MG, QD
     Route: 048
     Dates: start: 20171221
  2. PREDNISONE. [Concomitant]
     Active Substance: PREDNISONE
     Indication: PRODUCT USED FOR UNKNOWN INDICATION
     Dosage: 50 MG, UNK
     Route: 065
  3. ZEJULA [Suspect]
     Active Substance: NIRAPARIB
     Dosage: 300 MG, QD
     Route: 048
     Dates: end: 20171208
  4. ZEJULA [Suspect]
     Active Substance: NIRAPARIB
     Dosage: 300 MG, QD
     Route: 048
     Dates: end: 201711
  5. SODIUM CHLORIDE. [Concomitant]
     Active Substance: SODIUM CHLORIDE
     Indication: PRODUCT USED FOR UNKNOWN INDICATION
     Dosage: 10 ML, UNK
     Route: 042
  6. HEPARIN FLUSH [Concomitant]
     Active Substance: HEPARIN SODIUM
     Indication: PRODUCT USED FOR UNKNOWN INDICATION
     Dosage: 500 IU, UNK
     Route: 042
  7. AUGMENTIN [Concomitant]
     Active Substance: AMOXICILLIN\CLAVULANATE POTASSIUM
     Indication: PRODUCT USED FOR UNKNOWN INDICATION
     Dosage: 1 DF, BID
     Route: 048
     Dates: start: 20171005
  8. DIPHENHYDRAMINE. [Concomitant]
     Active Substance: DIPHENHYDRAMINE
     Indication: PRODUCT USED FOR UNKNOWN INDICATION
     Dosage: 50 MG, UNK
     Route: 065
  9. ZEJULA [Suspect]
     Active Substance: NIRAPARIB
     Indication: OVARIAN CANCER
     Dosage: 300 MG, QD
     Route: 048
     Dates: start: 20171103
  10. DARBEPOETIN ALFA [Concomitant]
     Active Substance: DARBEPOETIN ALFA
     Indication: PRODUCT USED FOR UNKNOWN INDICATION
     Dosage: UNK
  11. COMPAZINE                          /00013302/ [Concomitant]
     Active Substance: PROCHLORPERAZINE EDISYLATE
     Indication: PRODUCT USED FOR UNKNOWN INDICATION
     Dosage: 10 MG, QD
     Route: 048
  12. METOPROLOL. [Concomitant]
     Active Substance: METOPROLOL
     Indication: HYPERTENSION
     Dosage: 50 MG, QD
     Route: 048
     Dates: start: 20150514

REACTIONS (21)
  - Haematocrit decreased [Unknown]
  - Nausea [Not Recovered/Not Resolved]
  - White blood cell count decreased [Unknown]
  - Insomnia [Not Recovered/Not Resolved]
  - Carbohydrate antigen 125 increased [Unknown]
  - Dyspnoea [Not Recovered/Not Resolved]
  - Blood pressure increased [Not Recovered/Not Resolved]
  - Headache [Not Recovered/Not Resolved]
  - Vomiting [Recovered/Resolved]
  - Haemoglobin decreased [Unknown]
  - Emotional distress [Not Recovered/Not Resolved]
  - Mean cell haemoglobin increased [Unknown]
  - Mean cell volume increased [Unknown]
  - Fatigue [Not Recovered/Not Resolved]
  - Blood count abnormal [Unknown]
  - Thrombocytopenia [Recovered/Resolved]
  - Muscle spasms [Recovering/Resolving]
  - Chest pain [Unknown]
  - Red blood cell count decreased [Unknown]
  - Localised infection [Not Recovered/Not Resolved]
  - Red cell distribution width increased [Unknown]

NARRATIVE: CASE EVENT DATE: 20171208
